FAERS Safety Report 19282156 (Version 1)
Quarter: 2021Q2

REPORT INFORMATION
  Report Type: Spontaneous
  Country: US (occurrence: US)
  Receive Date: 20210521
  Receipt Date: 20210521
  Transmission Date: 20210717
  Serious: No
  Sender: FDA-Public Use
  Company Number: US-DSJP-DSU-2021-115164

PATIENT
  Sex: Female

DRUGS (1)
  1. TURALIO [Suspect]
     Active Substance: PEXIDARTINIB HYDROCHLORIDE
     Indication: GIANT CELL TUMOUR OF TENDON SHEATH
     Dosage: ONE 200MG CAPSULE IN THE MORNING AND TWO 200 MG CAPSULES IN THE EVENING , QD
     Route: 048

REACTIONS (3)
  - Abdominal distension [Unknown]
  - Flatulence [Unknown]
  - Incorrect dose administered [Not Recovered/Not Resolved]
